FAERS Safety Report 4957294-3 (Version None)
Quarter: 2006Q1

REPORT INFORMATION
  Report Type: 
  Country: None (occurrence: None)
  Receive Date: 20060323
  Receipt Date: 20060306
  Transmission Date: 20060701
  Serious: No
  Sender: FDA-Public Use
  Company Number: 06031718

PATIENT
  Age: 7 Year
  Sex: Female

DRUGS (2)
  1. OVIDE [Suspect]
  2. ALBUTEROL [Concomitant]

REACTIONS (1)
  - DYSPNOEA [None]
